FAERS Safety Report 8447710-7 (Version None)
Quarter: 2012Q2

REPORT INFORMATION
  Report Type: 
  Country: None (occurrence: None)
  Receive Date: 20120619
  Receipt Date: 20120611
  Transmission Date: 20120825
  Serious: Yes (Hospitalization)
  Sender: FDA-Public Use
  Company Number: FR-BRISTOL-MYERS SQUIBB COMPANY-16424004

PATIENT
  Age: 14 Year
  Sex: Female
  Weight: 88 kg

DRUGS (4)
  1. ETOPOPHOS PRESERVATIVE FREE [Suspect]
     Indication: BONE SARCOMA
     Dosage: 19DEC11-22DEC11, 130MG/DAY REINTERDUCED 0N:9MAR12
     Dates: start: 20111219
  2. IFOSFAMIDE [Suspect]
     Indication: BONE SARCOMA
     Dosage: 19DEC11-22DEC11, 5190MG/DAY REINTERDUCED 0N:9MAR12
     Dates: start: 20111219
  3. MESNA [Concomitant]
     Route: 042
     Dates: start: 20111219, end: 20111222
  4. ZOFRAN [Concomitant]
     Route: 042
     Dates: start: 20111219, end: 20111222

REACTIONS (1)
  - NERVOUS SYSTEM DISORDER [None]
